FAERS Safety Report 10501728 (Version 4)
Quarter: 2015Q1

REPORT INFORMATION
  Report Type: Spontaneous
  Country: US (occurrence: US)
  Receive Date: 20141007
  Receipt Date: 20150114
  Transmission Date: 20150720
  Serious: No
  Sender: FDA-Public Use
  Company Number: US-PFIZER INC-2014272294

PATIENT
  Age: 54 Year
  Sex: Male

DRUGS (16)
  1. BABY ASPIRIN [Concomitant]
     Active Substance: ASPIRIN
     Dosage: 80 MG, 1X/DAY
  2. BUSPIRONE [Concomitant]
     Active Substance: BUSPIRONE HYDROCHLORIDE
     Dosage: 15 MG, 1X/DAY
  3. METFORMIN [Concomitant]
     Active Substance: METFORMIN HYDROCHLORIDE
     Dosage: 1000 MG, 2X/DAY
  4. FUROSEMIDE. [Concomitant]
     Active Substance: FUROSEMIDE
     Dosage: 20 MG, 1X/DAY
     Dates: start: 2014
  5. ATORVASTATIN [Concomitant]
     Active Substance: ATORVASTATIN
     Dosage: 40 MG, 1X/DAY
  6. OXYCODONE [Concomitant]
     Active Substance: OXYCODONE
     Dosage: 20 MG, 2X/DAY
     Dates: start: 2011
  7. LISINOPRIL. [Concomitant]
     Active Substance: LISINOPRIL
     Dosage: 2.5 MG, 1X/DAY
     Dates: start: 2014
  8. LYRICA [Suspect]
     Active Substance: PREGABALIN
     Indication: POST LAMINECTOMY SYNDROME
  9. MIRTAZAPINE. [Concomitant]
     Active Substance: MIRTAZAPINE
     Dosage: 45 MG, 1X/DAY
     Dates: start: 2014
  10. CHANTIX [Concomitant]
     Active Substance: VARENICLINE TARTRATE
     Dosage: 2 MG, 2X/DAY
  11. LYRICA [Suspect]
     Active Substance: PREGABALIN
     Indication: NEURALGIA
     Dosage: 50 MG, 3X/DAY (ONE THREE TIMES DAILY)
     Route: 048
     Dates: start: 201409
  12. TEMAZEPAM. [Concomitant]
     Active Substance: TEMAZEPAM
     Dosage: 30 MG, 1X/DAY
     Dates: start: 2014
  13. METOPROLOL [Concomitant]
     Active Substance: METOPROLOL
     Dosage: UNK
     Dates: start: 2014
  14. SOMA [Concomitant]
     Active Substance: CARISOPRODOL
     Dosage: 350 MG, 4X/DAY
     Dates: start: 201105
  15. NORTRIPTYLINE [Concomitant]
     Active Substance: NORTRIPTYLINE
     Dosage: 50 MG, 1X/DAY
     Dates: start: 2014
  16. WARFARIN [Concomitant]
     Active Substance: WARFARIN
     Dosage: UNK
     Dates: start: 2014

REACTIONS (2)
  - Neck pain [Not Recovered/Not Resolved]
  - Back pain [Not Recovered/Not Resolved]
